FAERS Safety Report 4970852-5 (Version None)
Quarter: 2006Q2

REPORT INFORMATION
  Report Type: 
  Country: None (occurrence: None)
  Receive Date: 20060406
  Receipt Date: 20060320
  Transmission Date: 20061013
  Serious: Yes (Death)
  Sender: FDA-Public Use
  Company Number: NL200603003911

PATIENT
  Age: 77 Year
  Sex: Female
  Weight: 42 kg

DRUGS (12)
  1. FORSTEO [Suspect]
     Indication: OSTEOPOROSIS
     Dosage: 20 UG, DAILY (1/D), SUBCUTANEOUS
     Route: 058
     Dates: start: 20050218, end: 20060212
  2. FORTEO PEN (FORTEO PEN) PEN, DISPOSABLE [Concomitant]
  3. SELOKEEN (METOPROLOL TARTRATE) [Concomitant]
  4. PROMOCARD (ISOSORBIDE MONONITRATE) [Concomitant]
  5. PLAVIX [Concomitant]
  6. ALDACTONE [Concomitant]
  7. LIPITOR [Concomitant]
  8. SERETIDE (FLUTICASONE PROPIONATE, SALMETEROL) [Concomitant]
  9. ASCAL (ACETYLSALICYLATE CALCIUM) [Concomitant]
  10. COVERSYL (PERINDOPRIL) [Concomitant]
  11. ALPRAZOLAM [Concomitant]
  12. CALCICHEW D3 (CALCIUM CARBONATE, COLECALCIFEROL) [Concomitant]

REACTIONS (1)
  - MYOCARDIAL INFARCTION [None]
